FAERS Safety Report 19504066 (Version 3)
Quarter: 2021Q3

REPORT INFORMATION
  Report Type: Report from Study
  Country: IT (occurrence: IT)
  Receive Date: 20210707
  Receipt Date: 20210726
  Transmission Date: 20211014
  Serious: Yes (Hospitalization, Other)
  Sender: FDA-Public Use
  Company Number: IT-PFIZER INC-2021758405

PATIENT
  Age: 50 Year
  Sex: Female

DRUGS (5)
  1. NEURAPAS FORTE [Concomitant]
     Dosage: 10 DF
  2. XANAX [Suspect]
     Active Substance: ALPRAZOLAM
     Dosage: 6 DF, SINGLE
     Route: 048
     Dates: start: 20210430, end: 20210501
  3. ABILIFY [Suspect]
     Active Substance: ARIPIPRAZOLE
     Dosage: 6 DF, SINGLE
     Route: 048
     Dates: start: 20210430, end: 20210501
  4. DULOXETINE HYDROCHLORIDE. [Suspect]
     Active Substance: DULOXETINE HYDROCHLORIDE
     Dosage: 360 MG, SINGLE
     Route: 048
     Dates: start: 20210430, end: 20210501
  5. OLANZAPINE. [Suspect]
     Active Substance: OLANZAPINE
     Dosage: 55 MG, SINGLE
     Route: 048
     Dates: start: 20210430, end: 20210501

REACTIONS (7)
  - Loss of consciousness [Recovered/Resolved]
  - Bundle branch block right [Recovered/Resolved]
  - Sinus tachycardia [Recovered/Resolved]
  - Intentional overdose [Recovered/Resolved]
  - Suicide attempt [Recovered/Resolved]
  - Drug abuse [Recovered/Resolved]
  - Sopor [Recovered/Resolved]

NARRATIVE: CASE EVENT DATE: 20210430
